FAERS Safety Report 15525790 (Version 1)
Quarter: 2018Q4

REPORT INFORMATION
  Report Type: Report from Study
  Country: US (occurrence: US)
  Receive Date: 20181018
  Receipt Date: 20181018
  Transmission Date: 20190205
  Serious: No
  Sender: FDA-Public Use
  Company Number: PHHY2018US127730

PATIENT
  Sex: Male
  Weight: 71.67 kg

DRUGS (1)
  1. COSENTYX [Suspect]
     Active Substance: SECUKINUMAB
     Indication: ANKYLOSING SPONDYLITIS
     Dosage: 150 MG, EVERY 5 WEEKS
     Route: 058

REACTIONS (2)
  - Localised infection [Unknown]
  - Inappropriate schedule of product administration [Unknown]
